FAERS Safety Report 6087870-9 (Version None)
Quarter: 2009Q1

REPORT INFORMATION
  Report Type: 
  Country: None (occurrence: None)
  Receive Date: 20090223
  Receipt Date: 20090218
  Transmission Date: 20090719
  Serious: No
  Sender: FDA-Public Use
  Company Number: US-B.I. PHARMACEUTICALS,INC./RIDGEFIELD-2009-BP-02048BP

PATIENT
  Age: 84 Year
  Sex: Female

DRUGS (4)
  1. MICARDIS [Suspect]
     Indication: HYPERTENSION
     Dosage: 80MG
     Route: 048
     Dates: start: 20090201
  2. ACTOS [Concomitant]
     Indication: DIABETES MELLITUS
  3. ALBUTEROL [Concomitant]
     Indication: ASTHMA
  4. LIPITOR [Concomitant]
     Indication: BLOOD CHOLESTEROL INCREASED

REACTIONS (1)
  - DIPLOPIA [None]
